FAERS Safety Report 6662339-9 (Version None)
Quarter: 2010Q1

REPORT INFORMATION
  Report Type: 
  Country: None (occurrence: None)
  Receive Date: 20100331
  Receipt Date: 20090818
  Transmission Date: 20100710
  Serious: No
  Sender: FDA-Public Use
  Company Number: US-ABBOTT-09P-163-0592908-00

PATIENT
  Age: 35 Year
  Sex: Female
  Weight: 64.468 kg

DRUGS (1)
  1. LUPRON DEPOT [Suspect]
     Indication: ENDOMETRIOSIS
     Route: 050
     Dates: start: 20090807

REACTIONS (2)
  - HYPOAESTHESIA [None]
  - PAIN IN EXTREMITY [None]
